FAERS Safety Report 19499025 (Version 1)
Quarter: 2021Q3

REPORT INFORMATION
  Report Type: Spontaneous
  Country: US (occurrence: US)
  Receive Date: 20210706
  Receipt Date: 20210706
  Transmission Date: 20211014
  Serious: No
  Sender: FDA-Public Use
  Company Number: US-BRISTOL-MYERS SQUIBB COMPANY-BMS-2021-063804

PATIENT
  Age: 27 Year
  Sex: Female
  Weight: 77.11 kg

DRUGS (2)
  1. NAPROXEN. [Concomitant]
     Active Substance: NAPROXEN
     Indication: PRODUCT USED FOR UNKNOWN INDICATION
     Dosage: UNK
     Route: 065
  2. ELIQUIS [Suspect]
     Active Substance: APIXABAN
     Indication: UTERINE LEIOMYOMA
     Dosage: 5 MILLIGRAM, BID
     Route: 048
     Dates: start: 2021

REACTIONS (3)
  - Asthenia [Unknown]
  - Intentional product use issue [Unknown]
  - Constipation [Unknown]
